FAERS Safety Report 6645720-3 (Version None)
Quarter: 2010Q1

REPORT INFORMATION
  Report Type: 
  Country: None (occurrence: None)
  Receive Date: 20100323
  Receipt Date: 20100317
  Transmission Date: 20100710
  Serious: Yes (Hospitalization)
  Sender: FDA-Public Use
  Company Number: NZ-ASTRAZENECA-2010SE11881

PATIENT
  Age: 525 Month
  Sex: Female

DRUGS (2)
  1. FENTANYL [Suspect]
     Dosage: ONCE
     Route: 042
     Dates: start: 20060401, end: 20060401
  2. PROPOFOL [Suspect]
     Dosage: ONCE
     Route: 042
     Dates: start: 20060401, end: 20060401

REACTIONS (2)
  - APNOEA [None]
  - CONVULSION [None]
